FAERS Safety Report 25453963 (Version 1)
Quarter: 2025Q2

REPORT INFORMATION
  Report Type: Spontaneous
  Country: JP (occurrence: JP)
  Receive Date: 20250619
  Receipt Date: 20250619
  Transmission Date: 20250716
  Serious: Yes (Other)
  Sender: ALEXION PHARMACEUTICALS
  Company Number: JP-ASTRAZENECA-250059279_032420_P_1

PATIENT

DRUGS (3)
  1. TEZSPIRE [Suspect]
     Active Substance: TEZEPELUMAB-EKKO
     Indication: Asthma
     Dosage: 210 MILLIGRAM, Q4W
  2. TEZSPIRE [Suspect]
     Active Substance: TEZEPELUMAB-EKKO
  3. ADRENAL [Concomitant]
     Active Substance: EPINEPHRINE
     Indication: Asthma

REACTIONS (4)
  - Gastrointestinal perforation [Recovering/Resolving]
  - Cough [Unknown]
  - Diverticulitis [Unknown]
  - Nasopharyngitis [Unknown]
